FAERS Safety Report 18748584 (Version 2)
Quarter: 2021Q1

REPORT INFORMATION
  Report Type: Spontaneous
  Country: GR (occurrence: GR)
  Receive Date: 20210115
  Receipt Date: 20210209
  Transmission Date: 20210419
  Serious: Yes (Other)
  Sender: FDA-Public Use
  Company Number: GR-BAUSCH-BL-2021-000360

PATIENT
  Age: 58 Year
  Sex: Female

DRUGS (9)
  1. DEXAMETHASONE. [Suspect]
     Active Substance: DEXAMETHASONE
     Indication: PLASMA CELL MYELOMA
     Dosage: 2 CYCLES OF VINCRISTINE?ADRIAMYCIN?DEXAMETHASONE
     Route: 065
  2. DEXAMETHASONE. [Suspect]
     Active Substance: DEXAMETHASONE
     Dosage: THREE 21?DAY CYCLES OF BORTEZOMIB?DEXAMETHASONE
     Route: 065
  3. DEXAMETHASONE. [Suspect]
     Active Substance: DEXAMETHASONE
     Dosage: LENDEX THERAPY; 20 MG/WEEK
     Route: 065
  4. BORTEZOMIB. [Suspect]
     Active Substance: BORTEZOMIB
     Indication: PLASMA CELL MYELOMA
     Dosage: THREE 21?DAY CYCLES OF BORTEZOMIB?DEXAMETHASONE
     Route: 065
  5. ADRIAMYCIN [Suspect]
     Active Substance: DOXORUBICIN HYDROCHLORIDE
     Indication: PLASMA CELL MYELOMA
     Dosage: 2 CYCLES OF VINCRISTINE?ADRIAMYCIN?DEXAMETHASONE
     Route: 065
  6. DEXAMETHASONE. [Suspect]
     Active Substance: DEXAMETHASONE
     Dosage: FOUR 28?DAY CYCLES OF THALIDOMIDE/DEXAMETHASONE
     Route: 065
  7. LENALIDOMIDE [Suspect]
     Active Substance: LENALIDOMIDE
     Indication: PLASMA CELL MYELOMA
     Dosage: LENDEX THERAPY
     Route: 065
  8. VINCRISTINE [Suspect]
     Active Substance: VINCRISTINE
     Indication: PLASMA CELL MYELOMA
     Dosage: 2 CYCLES OF VINCRISTINE?ADRIAMYCIN?DEXAMETHASONE
     Route: 065
  9. THALIDOMIDE [Suspect]
     Active Substance: THALIDOMIDE
     Indication: PLASMA CELL MYELOMA
     Dosage: FOUR 28?DAY CYCLES OF THALIDOMIDE/DEXAMETHASONE
     Route: 065

REACTIONS (6)
  - Neuropathy peripheral [Unknown]
  - Lymphopenia [Unknown]
  - Infection reactivation [Recovered/Resolved]
  - Hypotension [Unknown]
  - Visceral leishmaniasis [Recovered/Resolved]
  - Therapy non-responder [Unknown]
